FAERS Safety Report 20556504 (Version 2)
Quarter: 2022Q2

REPORT INFORMATION
  Report Type: Spontaneous
  Country: US (occurrence: US)
  Receive Date: 20220307
  Receipt Date: 20220418
  Transmission Date: 20220720
  Serious: Yes (Other)
  Sender: FDA-Public Use
  Company Number: US-TEVA-2022-US-2012486

PATIENT
  Age: 65 Year
  Sex: Female

DRUGS (2)
  1. METHYLPHENIDATE HYDROCHLORIDE [Suspect]
     Active Substance: METHYLPHENIDATE HYDROCHLORIDE
     Indication: Head injury
     Route: 065
  2. METHYLPHENIDATE HYDROCHLORIDE [Suspect]
     Active Substance: METHYLPHENIDATE HYDROCHLORIDE
     Indication: Dopaminergic drug therapy

REACTIONS (10)
  - Seizure [Recovered/Resolved]
  - Serotonin syndrome [Unknown]
  - Nervous system disorder [Recovered/Resolved]
  - Vomiting [Recovered/Resolved]
  - Drooling [Unknown]
  - Aphasia [Unknown]
  - Walking aid user [Unknown]
  - Product use in unapproved indication [Unknown]
  - Muscle twitching [Unknown]
  - Dysstasia [Unknown]
